FAERS Safety Report 6827264-9 (Version None)
Quarter: 2010Q3

REPORT INFORMATION
  Report Type: 
  Country: None (occurrence: None)
  Receive Date: 20100709
  Receipt Date: 20100707
  Transmission Date: 20110219
  Serious: Yes (Death)
  Sender: FDA-Public Use
  Company Number: JP-EISAI INC.-E2020-07015-SPO-JP

PATIENT
  Age: 79 Year
  Sex: Male
  Weight: 62.4 kg

DRUGS (7)
  1. ARICEPT [Suspect]
     Indication: DEMENTIA
     Route: 048
     Dates: start: 20100610, end: 20100613
  2. FUROSEMIDE [Concomitant]
     Indication: CARDIAC FAILURE
     Route: 048
     Dates: start: 20100301, end: 20100614
  3. ASPARA K [Concomitant]
     Route: 048
     Dates: start: 20100301, end: 20100614
  4. ALOSITOL [Concomitant]
     Route: 048
     Dates: start: 20100301, end: 20100614
  5. ERYTHROMYCIN [Concomitant]
     Route: 048
     Dates: start: 20100301, end: 20100614
  6. ANTOBRON [Concomitant]
     Route: 048
     Dates: start: 20100301, end: 20100614
  7. TULOBUTEROL [Concomitant]
     Dosage: AC
     Route: 048
     Dates: start: 20100301, end: 20100614

REACTIONS (3)
  - HEPATIC FUNCTION ABNORMAL [None]
  - RENAL FAILURE [None]
  - RHABDOMYOLYSIS [None]
